FAERS Safety Report 8635541 (Version 4)
Quarter: 2012Q4

REPORT INFORMATION
  Report Type: 
  Country: US (occurrence: US)
  Receive Date: 20120626
  Receipt Date: 20120913
  Transmission Date: 20130627
  Serious: Yes (Death, Life-Threatening, Hospitalization, Disabling, Other)
  Sender: FDA-Public Use
  Company Number: US-GLAXOSMITHKLINE-A0982339A

PATIENT
  Age: 58 Year
  Sex: Male
  Weight: 91 kg

DRUGS (8)
  1. FLOLAN [Suspect]
     Indication: PRODUCT USED FOR UNKNOWN INDICATION
     Dosage: 11U Continuous
     Route: 065
     Dates: start: 20100721
  2. RIFAXIMIN [Concomitant]
     Dosage: 550MG Twice per day
     Route: 048
  3. BENICAR HCT [Concomitant]
     Route: 048
  4. CETIRIZINE [Concomitant]
     Dosage: 10MG Per day
     Route: 048
  5. SPIRONOLACTONE [Concomitant]
     Dosage: 25MG Per day
     Route: 048
  6. TORSEMIDE [Concomitant]
     Dosage: 5MG Per day
     Route: 048
  7. LASIX [Concomitant]
     Dosage: 20MG As required
     Route: 048
  8. CLONAZEPAM [Concomitant]
     Dosage: .5MG At night
     Route: 048

REACTIONS (9)
  - Intracranial aneurysm [Fatal]
  - Aneurysm ruptured [Fatal]
  - Mental status changes [Recovering/Resolving]
  - Aneurysm repair [Unknown]
  - Haemorrhage intracranial [Fatal]
  - Cerebral haemorrhage [Recovering/Resolving]
  - Seizure like phenomena [Unknown]
  - Sinus bradycardia [Unknown]
  - Acute respiratory failure [Fatal]
